FAERS Safety Report 4713404-4 (Version None)
Quarter: 2005Q3

REPORT INFORMATION
  Report Type: 
  Country: None (occurrence: None)
  Receive Date: 20050713
  Receipt Date: 20050713
  Transmission Date: 20060218
  Serious: Yes (Hospitalization)
  Sender: FDA-Public Use
  Company Number: FR-JNJFOC-20050702114

PATIENT
  Age: 26 Month
  Sex: Female
  Weight: 14 kg

DRUGS (1)
  1. LOPERAMIDE [Suspect]
     Indication: GASTROENTERITIS
     Dosage: TOTAL DOSAGE (0.09 MG/KG) GIVEN.

REACTIONS (2)
  - LOSS OF CONSCIOUSNESS [None]
  - PALLOR [None]
